FAERS Safety Report 6098735-0 (Version None)
Quarter: 2009Q1

REPORT INFORMATION
  Report Type: 
  Country: None (occurrence: None)
  Receive Date: 20090302
  Receipt Date: 20090218
  Transmission Date: 20090719
  Serious: Yes (Hospitalization)
  Sender: FDA-Public Use
  Company Number: BE-PFIZER INC-2009165090

PATIENT

DRUGS (2)
  1. SUNITINIB MALATE [Suspect]
     Indication: OESOPHAGEAL CARCINOMA
     Dosage: 50 MG EVERY DAY
     Dates: start: 20081217, end: 20090110
  2. BUPRENORPHINE HCL [Concomitant]

REACTIONS (1)
  - OESOPHAGOBRONCHIAL FISTULA [None]
